FAERS Safety Report 9816713 (Version 2)
Quarter: 2014Q1

REPORT INFORMATION
  Report Type: Spontaneous
  Country: US (occurrence: US)
  Receive Date: 20140114
  Receipt Date: 20140114
  Transmission Date: 20141002
  Serious: No
  Sender: FDA-Public Use
  Company Number: US-ENDO PHARMACEUTICALS INC.-PERC20120152

PATIENT
  Sex: Female
  Weight: 61.29 kg

DRUGS (4)
  1. PERCOCET 10MG/325MG [Suspect]
     Indication: PAIN
     Dosage: 40/1300MG
     Route: 048
  2. OPANA ER [Concomitant]
     Indication: PAIN
     Route: 048
     Dates: start: 2012
  3. OPANA 10MG [Concomitant]
     Indication: PAIN
     Route: 048
     Dates: end: 201204
  4. VALIUM [Concomitant]
     Indication: PRODUCT USED FOR UNKNOWN INDICATION
     Dosage: UNK
     Route: 065

REACTIONS (1)
  - Drug ineffective [Not Recovered/Not Resolved]
